FAERS Safety Report 7941654-2 (Version None)
Quarter: 2011Q4

REPORT INFORMATION
  Report Type: 
  Country: None (occurrence: None)
  Receive Date: 20111128
  Receipt Date: 20111128
  Transmission Date: 20120403
  Serious: Yes (Other)
  Sender: FDA-Public Use
  Company Number: None

PATIENT
  Age: 28 Year
  Sex: Male
  Weight: 65.77 kg

DRUGS (1)
  1. PROPECIA [Suspect]
     Indication: ALOPECIA
     Dosage: 1 PER DAY
     Dates: start: 20080608, end: 20081220

REACTIONS (5)
  - FEELING ABNORMAL [None]
  - LOSS OF LIBIDO [None]
  - ANXIETY [None]
  - MENTAL IMPAIRMENT [None]
  - ERECTILE DYSFUNCTION [None]
